FAERS Safety Report 11201498 (Version 1)
Quarter: 2015Q2

REPORT INFORMATION
  Report Type: Spontaneous
  Country: DK (occurrence: None)
  Receive Date: 20150617
  Receipt Date: 20150617
  Transmission Date: 20150821
  Serious: Yes (Disabling)
  Sender: FDA-Public Use
  Company Number: CO-PL-DK-2015-064

PATIENT
  Age: 56 Year
  Sex: Male

DRUGS (1)
  1. PLAQUENIL [Suspect]
     Active Substance: HYDROXYCHLOROQUINE SULFATE
     Indication: RHEUMATOID ARTHRITIS
     Route: 048
     Dates: start: 200309, end: 20111124

REACTIONS (5)
  - Cataract [None]
  - Retinopathy [None]
  - Retinal depigmentation [None]
  - Deposit eye [None]
  - Visual acuity reduced [None]

NARRATIVE: CASE EVENT DATE: 20040903
